FAERS Safety Report 5743806-9 (Version None)
Quarter: 2008Q2

REPORT INFORMATION
  Report Type: 
  Country: None (occurrence: None)
  Receive Date: 20080519
  Receipt Date: 20080519
  Transmission Date: 20081010
  Serious: No
  Sender: FDA-Public Use
  Company Number: None

PATIENT
  Age: 61 Year
  Sex: Female
  Weight: 106.5953 kg

DRUGS (1)
  1. ACTONEL [Suspect]
     Indication: OSTEOPENIA
     Dosage: ONE TAB -75 MG-    ONCE A DAY       PO
     Route: 048
     Dates: start: 20080401, end: 20080402

REACTIONS (2)
  - ADVERSE DRUG REACTION [None]
  - ARTHRALGIA [None]
